FAERS Safety Report 6578275-2 (Version None)
Quarter: 2010Q1

REPORT INFORMATION
  Report Type: 
  Country: None (occurrence: None)
  Receive Date: 20100211
  Receipt Date: 20100203
  Transmission Date: 20100710
  Serious: Yes (Life-Threatening)
  Sender: FDA-Public Use
  Company Number: B0624200A

PATIENT
  Sex: Male
  Weight: 51 kg

DRUGS (1)
  1. VALTREX [Suspect]
     Indication: HERPES ZOSTER
     Dosage: 1000MG TWICE PER DAY
     Route: 048
     Dates: start: 20091225, end: 20091227

REACTIONS (4)
  - APNOEA [None]
  - DELIRIUM [None]
  - ENCEPHALOPATHY [None]
  - PSYCHIATRIC SYMPTOM [None]
